FAERS Safety Report 6275959-0 (Version None)
Quarter: 2009Q3

REPORT INFORMATION
  Report Type: 
  Country: None (occurrence: None)
  Receive Date: 20090720
  Receipt Date: 20090707
  Transmission Date: 20100115
  Serious: Yes (Other)
  Sender: FDA-Public Use
  Company Number: 322667

PATIENT
  Age: 16 Year
  Sex: Female

DRUGS (5)
  1. METHOTREXATE [Suspect]
     Indication: DERMATOMYOSITIS
     Dosage: 25 MG, 1 WEEK, SUBCUTANEOUS
     Route: 058
  2. METHYLPREDNISOLONE [Suspect]
     Indication: DERMATOMYOSITIS
     Dosage: 4 MG, 1 DAY; 1 G
  3. AZATHIOPRINE [Concomitant]
  4. IMMUNE GLOBULIN INTRAVENOUS (HUMAN) [Concomitant]
  5. HYDROXYCHLOROQUINE SULFATE [Concomitant]

REACTIONS (5)
  - ACINETOBACTER INFECTION [None]
  - CALCINOSIS [None]
  - PANNICULITIS [None]
  - STAPHYLOCOCCAL INFECTION [None]
  - VASCULITIS [None]
